FAERS Safety Report 17644104 (Version 1)
Quarter: 2020Q2

REPORT INFORMATION
  Report Type: Spontaneous
  Country: FR (occurrence: FR)
  Receive Date: 20200408
  Receipt Date: 20200408
  Transmission Date: 20200713
  Serious: Yes (Other)
  Sender: FDA-Public Use
  Company Number: FR-CHEPLA-C20201202

PATIENT
  Age: 14 Year
  Sex: Male
  Weight: 46.2 kg

DRUGS (4)
  1. MESNA. [Suspect]
     Active Substance: MESNA
  2. DECTANCYL [Concomitant]
     Active Substance: DEXAMETHASONE
  3. ONDANSETRON [Suspect]
     Active Substance: ONDANSETRON
  4. ETOPOPHOS [Suspect]
     Active Substance: ETOPOSIDE PHOSPHATE
     Indication: LYMPHOMA
     Route: 042
     Dates: start: 20200307, end: 20200307

REACTIONS (2)
  - Dyspnoea [Recovered/Resolved]
  - Chest discomfort [Recovered/Resolved]

NARRATIVE: CASE EVENT DATE: 20200307
